FAERS Safety Report 25958047 (Version 1)
Quarter: 2025Q4

REPORT INFORMATION
  Report Type: Spontaneous
  Country: AW (occurrence: AW)
  Receive Date: 20251024
  Receipt Date: 20251024
  Transmission Date: 20260117
  Serious: Yes (Life-Threatening, Hospitalization)
  Sender: NOVARTIS
  Company Number: AW-002147023-NVSC2025AW164256

PATIENT
  Age: 29 Year
  Sex: Female

DRUGS (2)
  1. CARBAMAZEPINE [Suspect]
     Active Substance: CARBAMAZEPINE
     Indication: Product used for unknown indication
     Dosage: UNK
     Route: 065
  2. VITAMIN B [Concomitant]
     Active Substance: VITAMIN B
     Indication: Product used for unknown indication
     Dosage: UNK
     Route: 065

REACTIONS (10)
  - Toxic epidermal necrolysis [Recovered/Resolved]
  - Pallor [Recovered/Resolved]
  - Oedema [Recovered/Resolved]
  - Pain of skin [Recovered/Resolved]
  - Skin mass [Recovered/Resolved]
  - Blister [Recovered/Resolved]
  - Macule [Recovered/Resolved]
  - Skin exfoliation [Recovered/Resolved]
  - Erythema [Recovered/Resolved]
  - Eyelid erosion [Recovered/Resolved]
